FAERS Safety Report 23944654 (Version 1)
Quarter: 2024Q2

REPORT INFORMATION
  Report Type: Spontaneous
  Country: VN (occurrence: VN)
  Receive Date: 20240606
  Receipt Date: 20240606
  Transmission Date: 20240716
  Serious: Yes (Other)
  Sender: FDA-Public Use
  Company Number: VN-BAYER-2024A081011

PATIENT
  Age: 66 Year
  Sex: Male

DRUGS (7)
  1. RIVAROXABAN [Suspect]
     Active Substance: RIVAROXABAN
     Indication: Atrial fibrillation
     Dosage: 2.5 MG, BID
     Route: 048
  2. BISOPROLOL [Concomitant]
     Active Substance: BISOPROLOL\BISOPROLOL FUMARATE
     Dosage: 5 MG
  3. TELMISARTAN [Concomitant]
     Active Substance: TELMISARTAN
     Dosage: 40 MG
  4. ASPIRIN [Concomitant]
     Active Substance: ASPIRIN
     Dosage: 81 MG
  5. ATORVASTATIN [Concomitant]
     Active Substance: ATORVASTATIN
  6. GLICLAZIDE [Concomitant]
     Active Substance: GLICLAZIDE
     Dosage: 30 MG
  7. DAPAGLIFLOZIN PROPANEDIOL\METFORMIN HYDROCHLORIDE [Concomitant]
     Active Substance: DAPAGLIFLOZIN PROPANEDIOL\METFORMIN HYDROCHLORIDE

REACTIONS (4)
  - Atrial fibrillation [Unknown]
  - Heart rate increased [Unknown]
  - Palpitations [Unknown]
  - Chest discomfort [Unknown]
